FAERS Safety Report 21680835 (Version 4)
Quarter: 2023Q2

REPORT INFORMATION
  Report Type: Report from Study
  Country: US (occurrence: US)
  Receive Date: 20221205
  Receipt Date: 20230516
  Transmission Date: 20230722
  Serious: Yes (Hospitalization)
  Sender: FDA-Public Use
  Company Number: US-ABBVIE-4222415

PATIENT
  Age: 55 Year
  Sex: Male

DRUGS (3)
  1. IMBRUVICA [Suspect]
     Active Substance: IBRUTINIB
     Indication: Diffuse large B-cell lymphoma
     Route: 048
  2. IMBRUVICA [Suspect]
     Active Substance: IBRUTINIB
     Indication: Diffuse large B-cell lymphoma
     Route: 048
  3. FLOMAX [Concomitant]
     Active Substance: TAMSULOSIN HYDROCHLORIDE
     Indication: Product used for unknown indication
     Route: 065

REACTIONS (10)
  - Pneumothorax [Unknown]
  - Pain [Recovering/Resolving]
  - Dizziness [Recovering/Resolving]
  - Pleural effusion [Recovering/Resolving]
  - Vertigo [Recovering/Resolving]
  - Clostridium difficile infection [Recovering/Resolving]
  - Vision blurred [Unknown]
  - Cough [Recovering/Resolving]
  - Hospice care [Unknown]
  - Feeling abnormal [Unknown]

NARRATIVE: CASE EVENT DATE: 20221122
